FAERS Safety Report 5893758-6 (Version None)
Quarter: 2008Q3

REPORT INFORMATION
  Report Type: 
  Country: None (occurrence: None)
  Receive Date: 20080818
  Receipt Date: 20071112
  Transmission Date: 20090109
  Serious: Yes (Other)
  Sender: FDA-Public Use
  Company Number: 20084903

PATIENT
  Age: 27 Year
  Sex: Female

DRUGS (1)
  1. LIORESAL [Suspect]
     Indication: MUSCLE SPASTICITY
     Dosage: 635 MCG DAILY INTRATHECAL
     Route: 037

REACTIONS (4)
  - HYPERTONIA [None]
  - PARAESTHESIA [None]
  - PRURITUS [None]
  - WITHDRAWAL SYNDROME [None]
